FAERS Safety Report 7611417-6 (Version None)
Quarter: 2011Q3

REPORT INFORMATION
  Report Type: 
  Country: None (occurrence: None)
  Receive Date: 20110715
  Receipt Date: 20110707
  Transmission Date: 20111222
  Serious: Yes (Other)
  Sender: FDA-Public Use
  Company Number: US-US-EMD SERONO, INC.-7069664

PATIENT
  Sex: Female
  Weight: 91 kg

DRUGS (16)
  1. EPZICOM [Concomitant]
  2. COZAAR [Concomitant]
  3. EGRIFTA [Suspect]
     Indication: LENTIVIRUS TEST POSITIVE
  4. EGRIFTA [Suspect]
     Indication: LIPODYSTROPHY ACQUIRED
     Dates: start: 20110301, end: 20110501
  5. ISOSORBIDE DINITRATE [Concomitant]
  6. TRAMADOL HCL [Concomitant]
  7. VITAMIN D [Concomitant]
  8. PLAVIX [Concomitant]
  9. NEURONTIN [Concomitant]
  10. PROZAC [Concomitant]
  11. CRESTOR [Concomitant]
  12. ESTROGEN HORMONE [Concomitant]
  13. NEXIUM [Concomitant]
  14. METOPROLOL TARTRATE [Concomitant]
  15. SUSTIVA [Concomitant]
  16. CLONIDINE [Concomitant]

REACTIONS (2)
  - BREAST CANCER [None]
  - WEIGHT DECREASED [None]
